APPROVED DRUG PRODUCT: K-LEASE
Active Ingredient: POTASSIUM CHLORIDE
Strength: 8MEQ
Dosage Form/Route: CAPSULE, EXTENDED RELEASE;ORAL
Application: A073398 | Product #001
Applicant: SAVAGE LABORATORIES INC DIV ALTANA INC
Approved: Jan 28, 1992 | RLD: No | RS: No | Type: DISCN